FAERS Safety Report 4857989-6 (Version None)
Quarter: 2005Q4

REPORT INFORMATION
  Report Type: 
  Country: None (occurrence: None)
  Receive Date: 20051219
  Receipt Date: 20050424
  Transmission Date: 20060501
  Serious: No
  Sender: FDA-Public Use
  Company Number: US-GLAXOSMITHKLINE-A0555912A

PATIENT
  Sex: Male

DRUGS (2)
  1. NICODERM CQ [Suspect]
  2. COMMIT [Suspect]

REACTIONS (6)
  - ABDOMINAL DISTENSION [None]
  - DIARRHOEA [None]
  - DYSPEPSIA [None]
  - FLATULENCE [None]
  - NICOTINE DEPENDENCE [None]
  - SKIN IRRITATION [None]
